FAERS Safety Report 4332697-9 (Version None)
Quarter: 2004Q1

REPORT INFORMATION
  Report Type: 
  Country: None (occurrence: None)
  Receive Date: 20040330
  Receipt Date: 20040319
  Transmission Date: 20041129
  Serious: Yes (Hospitalization)
  Sender: FDA-Public Use
  Company Number: 2004198093DE

PATIENT
  Age: 53 Year
  Sex: Female
  Weight: 72 kg

DRUGS (3)
  1. BEXTRA [Suspect]
     Indication: OSTEOARTHRITIS
     Dosage: 20 MG, ORAL
     Route: 048
     Dates: start: 20040112, end: 20040122
  2. CELEBREX [Suspect]
     Dosage: ORAL
     Route: 048
     Dates: start: 20040121
  3. CIPROFLOXACIN [Suspect]
     Dates: start: 20031205

REACTIONS (5)
  - ALANINE AMINOTRANSFERASE INCREASED [None]
  - ASPARTATE AMINOTRANSFERASE INCREASED [None]
  - BLOOD CHOLESTEROL INCREASED [None]
  - DRUG ERUPTION [None]
  - PLATELET COUNT DECREASED [None]
